FAERS Safety Report 7150072-9 (Version None)
Quarter: 2010Q4

REPORT INFORMATION
  Report Type: 
  Country: None (occurrence: None)
  Receive Date: 20101210
  Receipt Date: 20101206
  Transmission Date: 20110411
  Serious: No
  Sender: FDA-Public Use
  Company Number: US-PFIZER INC-2010134680

PATIENT
  Sex: Female

DRUGS (2)
  1. LYRICA [Suspect]
     Indication: FIBROMYALGIA
     Dosage: UNK
     Dates: start: 20100401, end: 20100501
  2. VESICARE [Interacting]
     Indication: URINARY INCONTINENCE
     Dosage: 10 MG, UID/1X/DAY
     Route: 048
     Dates: start: 20100401

REACTIONS (2)
  - DRUG INTERACTION [None]
  - VISION BLURRED [None]
